FAERS Safety Report 6145049-6 (Version None)
Quarter: 2009Q2

REPORT INFORMATION
  Report Type: 
  Country: None (occurrence: None)
  Receive Date: 20090402
  Receipt Date: 20090123
  Transmission Date: 20091009
  Serious: No
  Sender: FDA-Public Use
  Company Number: 1000004737

PATIENT
  Age: 70 Year
  Sex: Male
  Weight: 101.6057 kg

DRUGS (5)
  1. BYSTOLIC [Suspect]
     Indication: HYPERTENSION
     Dosage: 10 MG (10 MG), ORAL
     Route: 048
     Dates: start: 20080601
  2. SPIRONOLACTONE [Suspect]
     Indication: HYPERTENSION
     Dosage: 25 MG (25 MG), ORAL
     Route: 048
     Dates: start: 20081101
  3. AMLODIPINE W / BENAZEPRIL HYDROCHLORIDE (AMLODIPINE, BENAZEPRIL HYDROC [Concomitant]
  4. LIPITOR [Concomitant]
  5. PAXIL [Concomitant]

REACTIONS (3)
  - PURPURA [None]
  - RASH ERYTHEMATOUS [None]
  - RASH MACULO-PAPULAR [None]
